FAERS Safety Report 7073453-0 (Version None)
Quarter: 2010Q4

REPORT INFORMATION
  Report Type: 
  Country: None (occurrence: None)
  Receive Date: 20101029
  Receipt Date: 20100621
  Transmission Date: 20110411
  Serious: No
  Sender: FDA-Public Use
  Company Number: A0866316A

PATIENT
  Age: 74 Year
  Sex: Female

DRUGS (6)
  1. ADVAIR DISKUS 100/50 [Suspect]
     Indication: CHRONIC OBSTRUCTIVE PULMONARY DISEASE
     Dosage: 1PUFF TWICE PER DAY
     Route: 055
     Dates: start: 20100329
  2. SINGULAIR [Concomitant]
  3. BLOOD PRESSURE MEDICATION [Concomitant]
  4. NEBULIZER [Concomitant]
  5. EYE DROPS [Concomitant]
  6. DIURETIC [Concomitant]

REACTIONS (2)
  - MUSCULOSKELETAL PAIN [None]
  - PAIN [None]
